FAERS Safety Report 4345897-9 (Version None)
Quarter: 2004Q2

REPORT INFORMATION
  Report Type: 
  Country: None (occurrence: None)
  Receive Date: 20040423
  Receipt Date: 20040423
  Transmission Date: 20050107
  Serious: Yes (Hospitalization)
  Sender: FDA-Public Use
  Company Number: None

PATIENT
  Age: 84 Year
  Sex: Male
  Weight: 74 kg

DRUGS (1)
  1. PLETAL [Suspect]
     Dosage: 100 MG DAILY ORAL
     Route: 048
     Dates: start: 20040415, end: 20040419

REACTIONS (4)
  - DIARRHOEA [None]
  - LIVER FUNCTION TEST ABNORMAL [None]
  - RASH [None]
  - TACHYCARDIA [None]
